FAERS Safety Report 11641463 (Version 3)
Quarter: 2015Q4

REPORT INFORMATION
  Report Type: Spontaneous
  Country: CZ (occurrence: CZ)
  Receive Date: 20151019
  Receipt Date: 20151204
  Transmission Date: 20160304
  Serious: Yes (Hospitalization)
  Sender: FDA-Public Use
  Company Number: CZ-SYMPLMED PHARMACEUTICALS-2015SYMPLMED000041

PATIENT

DRUGS (16)
  1. SORTIS [Concomitant]
     Active Substance: ATORVASTATIN
     Indication: PRODUCT USED FOR UNKNOWN INDICATION
     Dosage: 20 MG, QD
     Dates: end: 201509
  2. JANUVIA [Concomitant]
     Active Substance: SITAGLIPTIN PHOSPHATE
     Indication: PRODUCT USED FOR UNKNOWN INDICATION
     Dosage: 100 MG, QD
     Dates: end: 201509
  3. OMNIC [Suspect]
     Active Substance: TAMSULOSIN HYDROCHLORIDE
     Indication: PRODUCT USED FOR UNKNOWN INDICATION
     Dosage: 0.4 MG, QD
     Route: 048
     Dates: end: 201508
  4. LANZUL [Concomitant]
     Active Substance: LANSOPRAZOLE
     Indication: PRODUCT USED FOR UNKNOWN INDICATION
     Dosage: 15 MG, QD
     Dates: end: 201508
  5. URIZIA [Concomitant]
     Indication: PRODUCT USED FOR UNKNOWN INDICATION
     Dosage: 6 MG/0.4MG, ONCE DAILY
     Dates: end: 201509
  6. PRESTARIUM NEO [Suspect]
     Active Substance: PERINDOPRIL ARGININE
     Indication: HYPERTENSION
     Dosage: 5 MG, QD
     Route: 048
     Dates: start: 201403, end: 201508
  7. MONOTAB [Suspect]
     Active Substance: ISOSORBIDE MONONITRATE
     Indication: PRODUCT USED FOR UNKNOWN INDICATION
     Dosage: 100 MG, QD
     Dates: end: 201508
  8. CONCOR [Suspect]
     Active Substance: BISOPROLOL FUMARATE
     Indication: MYOCARDIAL ISCHAEMIA
     Dosage: 2.5 MG, QD
     Route: 048
     Dates: end: 20150907
  9. TN UNSPECIFIED [Suspect]
     Active Substance: TROLNITRATE
     Indication: MYOCARDIAL ISCHAEMIA
     Dosage: UNK
     Dates: end: 201508
  10. CONCOR [Suspect]
     Active Substance: BISOPROLOL FUMARATE
     Indication: CARDIAC FAILURE
     Dosage: 2.5 MG, QD
     Route: 048
     Dates: start: 201509, end: 201509
  11. NOVOMIX [Concomitant]
     Active Substance: INSULIN ASPART
     Indication: PRODUCT USED FOR UNKNOWN INDICATION
     Dosage: 40 UNITS, QD
     Route: 051
     Dates: end: 201509
  12. FURORESE                           /00032602/ [Concomitant]
     Indication: PRODUCT USED FOR UNKNOWN INDICATION
     Dosage: 375 MG, QD
     Dates: end: 201509
  13. ANOPYRIN [Concomitant]
     Active Substance: ASPIRIN
     Indication: PRODUCT USED FOR UNKNOWN INDICATION
     Dosage: 100 MG, QD
     Dates: end: 201509
  14. PREDUCTAL MR [Concomitant]
     Active Substance: TRIMETAZIDINE DIHYDROCHLORIDE
     Indication: PRODUCT USED FOR UNKNOWN INDICATION
     Dosage: 70 MG, QD
     Dates: end: 201509
  15. ITOPRID PMCS [Concomitant]
     Indication: PRODUCT USED FOR UNKNOWN INDICATION
     Dosage: 150 MG, QD
     Dates: end: 201509
  16. AKTIFERRIN COMPOSITUM [Concomitant]
     Indication: PRODUCT USED FOR UNKNOWN INDICATION
     Dosage: 1 TABLET, QD
     Dates: end: 201508

REACTIONS (3)
  - Hyperglycaemia [Recovered/Resolved]
  - Hypotension [Recovered/Resolved]
  - Hyponatraemia [Recovered/Resolved]

NARRATIVE: CASE EVENT DATE: 20150809
